FAERS Safety Report 10620517 (Version 2)
Quarter: 2014Q4

REPORT INFORMATION
  Report Type: Spontaneous
  Country: SE (occurrence: SE)
  Receive Date: 20141202
  Receipt Date: 20141202
  Transmission Date: 20150529
  Serious: Yes (Death, Other)
  Sender: FDA-Public Use
  Company Number: CHNY2014SE000981

PATIENT

DRUGS (2)
  1. SCOPODERM TTS [Suspect]
     Active Substance: SCOPOLAMINE
     Indication: RHINITIS
  2. SCOPODERM TTS [Suspect]
     Active Substance: SCOPOLAMINE
     Indication: SPUTUM INCREASED
     Dosage: UNK, 1MG/72 HOURS
     Route: 062
     Dates: start: 20130207, end: 20130313

REACTIONS (10)
  - Eye irritation [Unknown]
  - Balance disorder [Unknown]
  - Cough [Unknown]
  - Confusional state [Unknown]
  - Somnolence [Unknown]
  - Death [Fatal]
  - Lung disorder [Unknown]
  - Vision blurred [Unknown]
  - Restlessness [Unknown]
  - Headache [Unknown]

NARRATIVE: CASE EVENT DATE: 201302
